FAERS Safety Report 15276510 (Version 1)
Quarter: 2018Q3

REPORT INFORMATION
  Report Type: Report from Study
  Country: US (occurrence: US)
  Receive Date: 20180814
  Receipt Date: 20180814
  Transmission Date: 20181010
  Serious: Yes (Other)
  Sender: FDA-Public Use
  Company Number: US-AMGEN-USASL2018100151

PATIENT
  Age: 77 Year
  Sex: Female
  Weight: 75.28 kg

DRUGS (2)
  1. REPATHA [Suspect]
     Active Substance: EVOLOCUMAB
     Indication: HYPERLIPIDAEMIA
  2. REPATHA [Suspect]
     Active Substance: EVOLOCUMAB
     Indication: BLOOD CHOLESTEROL INCREASED
     Dosage: 140 MG, Q2WK
     Route: 065
     Dates: start: 20180717, end: 20180717

REACTIONS (10)
  - Blood pressure increased [Recovered/Resolved]
  - Injection site swelling [Recovered/Resolved]
  - Musculoskeletal discomfort [Recovered/Resolved]
  - Hypoaesthesia [Recovered/Resolved]
  - Bone pain [Recovered/Resolved]
  - Head discomfort [Recovered/Resolved]
  - Oropharyngeal discomfort [Recovered/Resolved]
  - Injection site erythema [Recovered/Resolved]
  - Myalgia [Recovered/Resolved]
  - Rash [Recovered/Resolved]

NARRATIVE: CASE EVENT DATE: 20180717
